FAERS Safety Report 11244912 (Version 2)
Quarter: 2015Q3

REPORT INFORMATION
  Report Type: Spontaneous
  Country: BR (occurrence: BR)
  Receive Date: 20150707
  Receipt Date: 20150713
  Transmission Date: 20151125
  Serious: Yes (Other)
  Sender: FDA-Public Use
  Company Number: BR-PFIZER INC-2015220538

PATIENT
  Age: 62 Year
  Sex: Female
  Weight: 66 kg

DRUGS (1)
  1. FRONTAL [Suspect]
     Active Substance: ALPRAZOLAM
     Indication: NERVOUSNESS
     Dosage: 1 MG, DAILY
     Route: 048
     Dates: start: 2012

REACTIONS (4)
  - Cataract [Unknown]
  - Irritability [Unknown]
  - Visual acuity reduced [Not Recovered/Not Resolved]
  - Dry eye [Not Recovered/Not Resolved]

NARRATIVE: CASE EVENT DATE: 201312
